FAERS Safety Report 18534106 (Version 5)
Quarter: 2022Q1

REPORT INFORMATION
  Report Type: Spontaneous
  Country: US (occurrence: US)
  Receive Date: 20201123
  Receipt Date: 20220303
  Transmission Date: 20220423
  Serious: Yes (Other)
  Sender: FDA-Public Use
  Company Number: US-PFIZER INC-2019147510

PATIENT
  Age: 47 Year
  Sex: Female

DRUGS (1)
  1. XELJANZ XR [Suspect]
     Active Substance: TOFACITINIB CITRATE
     Dosage: 11 MG

REACTIONS (7)
  - Blindness [Unknown]
  - Drug dependence [Not Recovered/Not Resolved]
  - Product dose omission issue [Unknown]
  - Insomnia [Unknown]
  - Pain [Unknown]
  - Illness [Unknown]
  - Migraine [Unknown]
